APPROVED DRUG PRODUCT: ACETAMINOPHEN AND IBUPROFEN
Active Ingredient: ACETAMINOPHEN; IBUPROFEN
Strength: 250MG;125MG
Dosage Form/Route: TABLET;ORAL
Application: A218247 | Product #001
Applicant: DR REDDYS LABORATORIES LTD
Approved: Aug 23, 2024 | RLD: No | RS: No | Type: OTC